FAERS Safety Report 5664419-3 (Version None)
Quarter: 2008Q1

REPORT INFORMATION
  Report Type: 
  Country: None (occurrence: None)
  Receive Date: 20080312
  Receipt Date: 20080220
  Transmission Date: 20080703
  Serious: Yes (Other)
  Sender: FDA-Public Use
  Company Number: ENTC2008-0016

PATIENT
  Age: 79 Year
  Sex: Male

DRUGS (7)
  1. STALEVO 100 [Suspect]
     Dates: start: 20061101
  2. LEBOCAR [Concomitant]
  3. CARVEDILOL [Concomitant]
  4. PRAMIPEXOLE DIHYDROCHLORIDE [Concomitant]
  5. ALDACTONE [Concomitant]
  6. NEUREX [Concomitant]
  7. GINKGO BILOBA [Concomitant]

REACTIONS (11)
  - CONDITION AGGRAVATED [None]
  - DELIRIUM [None]
  - EXTRAPYRAMIDAL DISORDER [None]
  - HAEMOGLOBIN DECREASED [None]
  - HALLUCINATION, VISUAL [None]
  - HYPERTENSION [None]
  - MUSCLE RIGIDITY [None]
  - RED BLOOD CELL COUNT DECREASED [None]
  - RETICULOCYTE PERCENTAGE INCREASED [None]
  - THROMBOCYTOPENIA [None]
  - TREMOR [None]
